FAERS Safety Report 9630945 (Version 4)
Quarter: 2013Q4

REPORT INFORMATION
  Report Type: Spontaneous
  Country: JP (occurrence: JP)
  Receive Date: 20131018
  Receipt Date: 20131129
  Transmission Date: 20140711
  Serious: Yes (Hospitalization)
  Sender: FDA-Public Use
  Company Number: JP-JNJFOC-20131008441

PATIENT
  Age: 79 Year
  Sex: Male
  Weight: 75 kg

DRUGS (14)
  1. REMINYL [Suspect]
     Indication: DEMENTIA ALZHEIMER^S TYPE
     Route: 048
     Dates: start: 20130911, end: 20130917
  2. EDIROL [Concomitant]
     Dosage: 0.75 MCG
     Route: 048
  3. PRAVASTATIN SODIUM [Concomitant]
     Route: 048
     Dates: start: 20130927
  4. PRAVASTATIN SODIUM [Concomitant]
     Route: 048
     Dates: start: 201302, end: 20130917
  5. HYPEN [Concomitant]
     Route: 048
  6. REBAMIPIDE [Concomitant]
     Route: 048
  7. MAGMITT [Concomitant]
     Route: 048
  8. PRIMPERAN [Concomitant]
     Route: 065
  9. EURODIN [Concomitant]
     Route: 048
     Dates: start: 201302
  10. BROTIZOLAM [Concomitant]
     Route: 048
     Dates: start: 201302
  11. NORSPAN [Concomitant]
     Route: 062
  12. VESICARE [Concomitant]
     Route: 048
  13. WYPAX [Concomitant]
     Route: 048
     Dates: start: 201302, end: 20130917
  14. ELIETEN [Concomitant]
     Route: 048
     Dates: end: 20130917

REACTIONS (2)
  - Rhabdomyolysis [Recovering/Resolving]
  - Altered state of consciousness [Not Recovered/Not Resolved]
